FAERS Safety Report 4989911-6 (Version None)
Quarter: 2006Q2

REPORT INFORMATION
  Report Type: 
  Country: None (occurrence: None)
  Receive Date: 20060503
  Receipt Date: 20060313
  Transmission Date: 20061013
  Serious: Yes (Hospitalization)
  Sender: FDA-Public Use
  Company Number: US-BRISTOL-MYERS SQUIBB COMPANY-13314026

PATIENT
  Age: 23 Year
  Sex: Male

DRUGS (9)
  1. REYATAZ [Suspect]
     Indication: HIV INFECTION
     Dosage: INTERRUPTED 14-FEB-2006
     Route: 048
     Dates: start: 20060104, end: 20060214
  2. TRUVADA [Suspect]
     Indication: HIV INFECTION
     Dosage: DOSE 200/300 MG PER TAB, INTERRUPTED 14-FEB-2006
     Route: 048
     Dates: start: 20060104, end: 20060214
  3. NORVIR [Suspect]
     Indication: HIV INFECTION
     Dosage: INTERRUPTED 14-FEB-2006
     Route: 048
     Dates: start: 20060104, end: 20060214
  4. CLINDAMYCIN [Suspect]
     Indication: TOXOPLASMOSIS
     Dates: start: 20060119, end: 20060214
  5. ZITHROMAX [Concomitant]
     Indication: PROPHYLAXIS
     Dosage: INTERRUPTED ON 14-FEB-2006
     Dates: start: 20051209, end: 20060214
  6. LEUCOVORIN [Concomitant]
     Indication: TOXOPLASMOSIS
     Dates: start: 20060119
  7. PYRIMETHAMINE TAB [Concomitant]
     Indication: TOXOPLASMOSIS
     Dates: start: 20060202
  8. COMPAZINE [Concomitant]
     Indication: NAUSEA
     Dates: start: 20060203, end: 20060214
  9. DAPSONE [Concomitant]
     Indication: PROPHYLAXIS

REACTIONS (3)
  - DEHYDRATION [None]
  - TOXOPLASMOSIS [None]
  - VOMITING [None]
